FAERS Safety Report 10256724 (Version 1)
Quarter: 2014Q2

REPORT INFORMATION
  Report Type: Report from Study
  Country: DE (occurrence: DE)
  Receive Date: 20140624
  Receipt Date: 20140624
  Transmission Date: 20141212
  Serious: Yes (Hospitalization)
  Sender: FDA-Public Use
  Company Number: DE-JNJFOC-20130906185

PATIENT
  Age: 79 Year
  Sex: Male
  Weight: 110 kg

DRUGS (29)
  1. RIVAROXABAN [Suspect]
     Indication: ATRIAL FIBRILLATION
     Route: 048
     Dates: start: 20130425, end: 20130815
  2. RIVAROXABAN [Suspect]
     Indication: THROMBOSIS PROPHYLAXIS
     Route: 048
     Dates: start: 20130425, end: 20130815
  3. RIVAROXABAN [Suspect]
     Indication: CEREBROVASCULAR ACCIDENT PROPHYLAXIS
     Route: 048
     Dates: start: 20130425, end: 20130815
  4. MARCUPHEN [Concomitant]
     Indication: PRODUCT USED FOR UNKNOWN INDICATION
     Route: 065
     Dates: start: 20130816
  5. FORMOTEROL [Concomitant]
     Indication: PRODUCT USED FOR UNKNOWN INDICATION
     Dosage: TOTAL DAILY DOSE 24
     Route: 065
     Dates: start: 20130816
  6. BUDESONID [Concomitant]
     Indication: PRODUCT USED FOR UNKNOWN INDICATION
     Dosage: TOTAL DAILY DOSE 0.2
     Route: 065
     Dates: start: 20130816
  7. TILICOMP [Concomitant]
     Indication: PRODUCT USED FOR UNKNOWN INDICATION
     Dosage: TOTAL DALIY DOSE 8
     Route: 065
     Dates: start: 20130816
  8. SPIRONOLACTON [Concomitant]
     Indication: PRODUCT USED FOR UNKNOWN INDICATION
     Dosage: TOTAL DAILY DOSE 50
     Route: 065
     Dates: start: 20130816
  9. MARCUMAR [Concomitant]
     Indication: CEREBROVASCULAR ACCIDENT PROPHYLAXIS
     Route: 065
     Dates: start: 20130816
  10. AMIODARON [Concomitant]
     Indication: PRODUCT USED FOR UNKNOWN INDICATION
     Dosage: TOTAL DAILY DOSE 200
     Route: 065
     Dates: start: 20130816
  11. TORASEMID [Concomitant]
     Indication: PRODUCT USED FOR UNKNOWN INDICATION
     Route: 065
     Dates: start: 20130815
  12. XIPAMID [Concomitant]
     Indication: PRODUCT USED FOR UNKNOWN INDICATION
     Route: 065
     Dates: start: 20130724, end: 20130815
  13. XIPAMID [Concomitant]
     Indication: PRODUCT USED FOR UNKNOWN INDICATION
     Route: 065
     Dates: start: 20130815
  14. RAMIPRIL BETA [Concomitant]
     Indication: PRODUCT USED FOR UNKNOWN INDICATION
     Dosage: 5 (UNITS UNSPECIFIED)
     Route: 065
  15. DIGOXIN [Concomitant]
     Indication: PRODUCT USED FOR UNKNOWN INDICATION
     Dosage: TOTAL DAILY DOSE 0.07
     Route: 065
     Dates: start: 20130815
  16. EFEROX [Concomitant]
     Indication: PRODUCT USED FOR UNKNOWN INDICATION
     Dosage: TOTAL DAILY DOSE 150
     Route: 065
  17. OMEP [Concomitant]
     Indication: PRODUCT USED FOR UNKNOWN INDICATION
     Dosage: TOTAL DAILY DOSE 20
     Route: 065
  18. MIRTALICH [Concomitant]
     Indication: PRODUCT USED FOR UNKNOWN INDICATION
     Dosage: TOTAL DAILY DOSE 30
     Route: 065
  19. FUROSEMID [Concomitant]
     Indication: PRODUCT USED FOR UNKNOWN INDICATION
     Dosage: TOTAL DAILY DOSE 80
     Route: 065
     Dates: start: 20130816
  20. NOVAMINSULFON [Concomitant]
     Indication: PRODUCT USED FOR UNKNOWN INDICATION
     Dosage: 4X20 GTT
     Route: 065
     Dates: start: 20130816
  21. ACLIDINIUM [Concomitant]
     Dosage: TOTAL DAILY DOSE 644
     Route: 065
     Dates: end: 20130815
  22. OXAZEPAM [Concomitant]
     Route: 065
     Dates: start: 20130724, end: 20130815
  23. SPIRIVA [Concomitant]
     Route: 065
     Dates: start: 20130724, end: 20130815
  24. CORDAREX [Concomitant]
     Route: 065
     Dates: start: 20130724, end: 20130815
  25. REMERGIL [Concomitant]
     Route: 065
     Dates: start: 20130724, end: 20130815
  26. EUTHYROX [Concomitant]
     Route: 065
     Dates: start: 20130724, end: 20130815
  27. TOREM [Concomitant]
     Route: 065
     Dates: start: 20130816
  28. TOREM [Concomitant]
     Route: 065
     Dates: start: 20130724, end: 20130815
  29. RAMIPRIL [Concomitant]
     Route: 065

REACTIONS (4)
  - Haemorrhoidal haemorrhage [Recovered/Resolved]
  - Cardiac failure acute [Recovered/Resolved]
  - Haemoglobin decreased [Recovered/Resolved]
  - Chronic obstructive pulmonary disease [Recovering/Resolving]
